FAERS Safety Report 8984890 (Version 4)
Quarter: 2013Q2

REPORT INFORMATION
  Report Type: Spontaneous
  Country: IT (occurrence: IT)
  Receive Date: 20121226
  Receipt Date: 20130404
  Transmission Date: 20140414
  Serious: No
  Sender: FDA-Public Use
  Company Number: IT-009507513-1212ITA009617

PATIENT
  Age: 56 Year
  Sex: Male

DRUGS (7)
  1. SYCREST [Suspect]
     Indication: BIPOLAR DISORDER
     Dosage: 5 MG, BID(STRENGTH 5MG)
     Route: 060
     Dates: start: 20121022, end: 20121221
  2. SYCREST [Suspect]
     Indication: MANIA
     Dosage: 10 MG, BID(STRENGTH10MG)
     Route: 060
     Dates: start: 2012, end: 20121221
  3. ZYPREXA [Concomitant]
     Indication: BIPOLAR DISORDER
     Dosage: 20 MG, BID(DOSE REDUCTION WAS STARTED WITH 2.5MG STEPS EVERY 10 DAYS, AFTER AN INITIAL PERIOD
     Route: 048
  4. ZYPREXA [Concomitant]
     Dosage: 5 MG, BID
     Route: 048
  5. ZYPREXA [Concomitant]
     Dosage: 2.5 MG, BID
     Route: 048
  6. ZOLOFT [Concomitant]
     Dosage: UNK UNK, QD
  7. SERTRALINE HYDROCHLORIDE [Concomitant]
     Indication: AFFECTIVE DISORDER
     Dosage: 100 MG, QD
     Route: 048
     Dates: start: 20070101, end: 20121231

REACTIONS (7)
  - Lip oedema [Recovering/Resolving]
  - Tongue oedema [Recovering/Resolving]
  - Swelling [Recovering/Resolving]
  - Dysphagia [Recovering/Resolving]
  - Glossodynia [Recovering/Resolving]
  - Paraesthesia oral [Recovering/Resolving]
  - Dysphagia [Recovering/Resolving]
